FAERS Safety Report 25392281 (Version 3)
Quarter: 2025Q4

REPORT INFORMATION
  Report Type: Spontaneous
  Country: US (occurrence: US)
  Receive Date: 20250603
  Receipt Date: 20251114
  Transmission Date: 20260119
  Serious: No
  Sender: SANOFI AVENTIS
  Company Number: US-SA-2025SA156037

PATIENT
  Age: 49 Year
  Sex: Female

DRUGS (7)
  1. DUPIXENT [Suspect]
     Active Substance: DUPILUMAB
     Indication: Dermatitis atopic
     Dosage: 300 MG, QOW
     Route: 058
     Dates: start: 20250402
  2. CLOBETASOL [Concomitant]
     Active Substance: CLOBETASOL
  3. EPINEPHRINE [Concomitant]
     Active Substance: EPINEPHRINE
  4. FAMOTIDINE [Concomitant]
     Active Substance: FAMOTIDINE
  5. FLUTICASONE [Concomitant]
     Active Substance: FLUTICASONE
  6. PREDNISONE [Concomitant]
     Active Substance: PREDNISONE
     Dosage: UNK
  7. ROSUVASTATIN [Concomitant]
     Active Substance: ROSUVASTATIN

REACTIONS (8)
  - Infection [Unknown]
  - Dysuria [Unknown]
  - Fatigue [Unknown]
  - Injection site rash [Unknown]
  - Eye pruritus [Recovered/Resolved]
  - Injection site reaction [Unknown]
  - Food allergy [Unknown]
  - Hypersensitivity [Unknown]

NARRATIVE: CASE EVENT DATE: 20250101
